FAERS Safety Report 17435060 (Version 9)
Quarter: 2021Q2

REPORT INFORMATION
  Report Type: Other
  Country: DE (occurrence: DE)
  Receive Date: 20200219
  Receipt Date: 20210628
  Transmission Date: 20210716
  Serious: No
  Sender: FDA-Public Use
  Company Number: DE-ROCHE-2513695

PATIENT
  Age: 28 Year
  Sex: Female

DRUGS (8)
  1. OCREVUS [Suspect]
     Active Substance: OCRELIZUMAB
     Route: 042
     Dates: start: 20191209
  2. DEKRISTOL [Concomitant]
     Active Substance: CHOLECALCIFEROL
  3. DESIRETT [Concomitant]
     Active Substance: DESOGESTREL
  4. OCREVUS [Suspect]
     Active Substance: OCRELIZUMAB
     Indication: RELAPSING-REMITTING MULTIPLE SCLEROSIS
     Route: 042
     Dates: start: 20191125
  5. OCREVUS [Suspect]
     Active Substance: OCRELIZUMAB
     Route: 042
     Dates: start: 20210111
  6. L?THYROXINE [Concomitant]
     Active Substance: LEVOTHYROXINE
  7. OCREVUS [Suspect]
     Active Substance: OCRELIZUMAB
     Route: 042
     Dates: start: 20200619
  8. ELIQUIS [Concomitant]
     Active Substance: APIXABAN

REACTIONS (12)
  - Nasopharyngitis [Recovered/Resolved]
  - COVID-19 [Recovered/Resolved]
  - Dry skin [Not Recovered/Not Resolved]
  - Rosacea [Recovered/Resolved]
  - Erythema [Recovered/Resolved]
  - Oral herpes [Recovered/Resolved]
  - Tachycardia [Recovered/Resolved]
  - Fatigue [Recovered/Resolved]
  - White blood cell count increased [Recovered/Resolved]
  - Dyspnoea [Recovered/Resolved]
  - Fatigue [Recovered/Resolved]
  - Weight increased [Not Recovered/Not Resolved]

NARRATIVE: CASE EVENT DATE: 20191125
